FAERS Safety Report 25259143 (Version 4)
Quarter: 2025Q4

REPORT INFORMATION
  Report Type: Report from Study
  Country: US (occurrence: US)
  Receive Date: 20250501
  Receipt Date: 20251014
  Transmission Date: 20260117
  Serious: Yes (Other)
  Sender: ABBVIE
  Company Number: US-ABBVIE-6257044

PATIENT
  Sex: Female

DRUGS (1)
  1. SKYRIZI [Suspect]
     Active Substance: RISANKIZUMAB-RZAA
     Indication: Psoriasis
     Route: 058
     Dates: start: 20230802

REACTIONS (3)
  - Age-related macular degeneration [Not Recovered/Not Resolved]
  - Diplopia [Not Recovered/Not Resolved]
  - Colour blindness acquired [Not Recovered/Not Resolved]
